FAERS Safety Report 14109333 (Version 1)
Quarter: 2017Q4

REPORT INFORMATION
  Report Type: Spontaneous
  Country: IT (occurrence: IT)
  Receive Date: 20171019
  Receipt Date: 20171019
  Transmission Date: 20180321
  Serious: Yes (Other)
  Sender: FDA-Public Use
  Company Number: PHHY2017IT151414

PATIENT
  Age: 40 Year
  Sex: Male

DRUGS (2)
  1. SANDIMMUN NEORAL [Suspect]
     Active Substance: CYCLOSPORINE
     Indication: PSORIASIS
     Dosage: UNK
     Route: 048
     Dates: start: 20170219, end: 20170719
  2. GARDENALE [Concomitant]
     Active Substance: PHENOBARBITAL
     Indication: SEIZURE
     Route: 048

REACTIONS (2)
  - Skin exfoliation [Not Recovered/Not Resolved]
  - Drug ineffective [Not Recovered/Not Resolved]

NARRATIVE: CASE EVENT DATE: 20170719
